FAERS Safety Report 13900046 (Version 1)
Quarter: 2017Q3

REPORT INFORMATION
  Report Type: Spontaneous
  Country: US (occurrence: None)
  Receive Date: 20170818
  Receipt Date: 20170818
  Transmission Date: 20171127
  Serious: Yes (Hospitalization)
  Sender: FDA-Public Use
  Company Number: None

PATIENT
  Age: 61 Year
  Sex: Male

DRUGS (1)
  1. RIVAROXABAN [Suspect]
     Active Substance: RIVAROXABAN
     Indication: DEEP VEIN THROMBOSIS
     Route: 048
     Dates: start: 20170314, end: 20170725

REACTIONS (5)
  - Barrett^s oesophagus [None]
  - Gastric haemorrhage [None]
  - Mallory-Weiss syndrome [None]
  - Haemoglobin decreased [None]
  - Gastritis [None]

NARRATIVE: CASE EVENT DATE: 20170725
